FAERS Safety Report 13339380 (Version 1)
Quarter: 2017Q1

REPORT INFORMATION
  Report Type: Spontaneous
  Country: US (occurrence: US)
  Receive Date: 20170315
  Receipt Date: 20170315
  Transmission Date: 20170428
  Serious: No
  Sender: FDA-Public Use
  Company Number: US-GE HEALTHCARE LIFE SCIENCES-2017CSU000132

PATIENT
  Age: 36 Year
  Sex: Female
  Weight: 47.6 kg

DRUGS (5)
  1. LEXAPRO [Concomitant]
     Active Substance: ESCITALOPRAM OXALATE
     Dosage: UNK
     Dates: start: 20170213, end: 20170213
  2. CARBIDOPA-LEVODOPA-B [Concomitant]
     Active Substance: CARBIDOPA\LEVODOPA
     Dosage: UNK UNKNOWN, UNK
     Dates: start: 20170213, end: 20170213
  3. DATSCAN [Suspect]
     Active Substance: IODINE\IOFLUPANE I-123
     Indication: PARKINSONISM
     Dosage: 4.3 MCI, SINGLE
     Route: 042
     Dates: start: 20170214, end: 20170214
  4. LORAZEPAM. [Concomitant]
     Active Substance: LORAZEPAM
     Dosage: UNK
     Dates: start: 20170214, end: 20170214
  5. POTASSIUM IODATE [Concomitant]
     Active Substance: POTASSIUM IODATE
     Dosage: UNK
     Dates: start: 20170214, end: 20170214

REACTIONS (2)
  - Radioisotope scan abnormal [Recovered/Resolved]
  - No adverse event [Recovered/Resolved]

NARRATIVE: CASE EVENT DATE: 20170214
